FAERS Safety Report 15620219 (Version 3)
Quarter: 2020Q1

REPORT INFORMATION
  Report Type: Spontaneous
  Country: US (occurrence: US)
  Receive Date: 20181115
  Receipt Date: 20200131
  Transmission Date: 20200409
  Serious: Yes (Death, Hospitalization)
  Sender: FDA-Public Use
  Company Number: US-ORPHAN EUROPE-2058874

PATIENT
  Age: 8 Year
  Sex: Male
  Weight: 31.1 kg

DRUGS (5)
  1. VITAMIN B12 [Concomitant]
     Active Substance: CYANOCOBALAMIN
  2. ASPIRIN. [Concomitant]
     Active Substance: ASPIRIN
  3. LEUCOVORIN. [Concomitant]
     Active Substance: LEUCOVORIN
  4. CYSTADANE [Suspect]
     Active Substance: BETAINE
     Indication: CYSTATHIONINE BETA-SYNTHASE DEFICIENCY
     Route: 048
     Dates: start: 20160901, end: 20181024
  5. VITAMIN B6 [Concomitant]
     Active Substance: PYRIDOXINE HYDROCHLORIDE

REACTIONS (11)
  - Abdominal discomfort [Unknown]
  - Fall [Unknown]
  - Status epilepticus [Fatal]
  - Brain oedema [Fatal]
  - Brain herniation [Fatal]
  - Hypermethioninaemia [Fatal]
  - Pulmonary embolism [Fatal]
  - Arrhythmia [Fatal]
  - Intracranial pressure increased [Fatal]
  - Chest pain [Unknown]
  - Dyspnoea [Unknown]

NARRATIVE: CASE EVENT DATE: 201810
